FAERS Safety Report 7738730-6 (Version None)
Quarter: 2011Q3

REPORT INFORMATION
  Report Type: 
  Country: None (occurrence: None)
  Receive Date: 20110908
  Receipt Date: 20110902
  Transmission Date: 20111222
  Serious: No
  Sender: FDA-Public Use
  Company Number: PR-PFIZER INC-2004111755

PATIENT
  Sex: Female

DRUGS (1)
  1. CELEBREX [Suspect]
     Dosage: 200MG, NOT DAILY
     Route: 048
     Dates: start: 20000101, end: 20010101

REACTIONS (4)
  - TONGUE DISORDER [None]
  - HYPERHIDROSIS [None]
  - BODY TEMPERATURE INCREASED [None]
  - TACHYCARDIA [None]
